FAERS Safety Report 6069314-6 (Version None)
Quarter: 2009Q1

REPORT INFORMATION
  Report Type: 
  Country: None (occurrence: None)
  Receive Date: 20090206
  Receipt Date: 20090203
  Transmission Date: 20090719
  Serious: Yes (Hospitalization)
  Sender: FDA-Public Use
  Company Number: BE-ASTRAZENECA-2009AC00495

PATIENT
  Age: 82 Year
  Sex: Female

DRUGS (12)
  1. CRESTOR [Suspect]
     Dosage: 20
     Route: 048
  2. ASAFLOW [Concomitant]
     Dosage: 160
  3. STEOVIT [Concomitant]
  4. BUREM [Concomitant]
  5. ZESTRIL [Concomitant]
  6. AMLOD [Concomitant]
  7. LORAMET [Concomitant]
  8. NOVITEM [Concomitant]
  9. TRAZOLAM [Concomitant]
  10. NEXIUM [Concomitant]
     Dosage: 20
  11. DIPHANTOINE [Concomitant]
  12. LASIX [Concomitant]

REACTIONS (1)
  - ASTHMA [None]
